FAERS Safety Report 8498552-8 (Version None)
Quarter: 2012Q3

REPORT INFORMATION
  Report Type: 
  Country: None (occurrence: None)
  Receive Date: 20120709
  Receipt Date: 20120626
  Transmission Date: 20120928
  Serious: No
  Sender: FDA-Public Use
  Company Number: US-AMGEN-USASP2012035148

PATIENT
  Age: 45 Year
  Sex: Female

DRUGS (1)
  1. ENBREL [Suspect]
     Indication: RHEUMATOID ARTHRITIS
     Dosage: 25 MG, EVERY 3-4 DAYS
     Route: 058
     Dates: start: 20060811

REACTIONS (6)
  - BACK PAIN [None]
  - INCREASED UPPER AIRWAY SECRETION [None]
  - JOINT STIFFNESS [None]
  - RHEUMATOID ARTHRITIS [None]
  - EAR CONGESTION [None]
  - THROAT IRRITATION [None]
